FAERS Safety Report 17535464 (Version 2)
Quarter: 2020Q2

REPORT INFORMATION
  Report Type: Report from Study
  Country: US (occurrence: US)
  Receive Date: 20200312
  Receipt Date: 20200401
  Transmission Date: 20200713
  Serious: No
  Sender: FDA-Public Use
  Company Number: US-AGIOS-2002US01689

PATIENT

DRUGS (1)
  1. TIBSOVO [Suspect]
     Active Substance: IVOSIDENIB
     Indication: ACUTE MYELOID LEUKAEMIA
     Dosage: 250 MILLIGRAM, 2 TABLETS (500 MG) DAILY
     Route: 048
     Dates: start: 20200205

REACTIONS (3)
  - Pre-existing condition improved [Unknown]
  - Asthenia [Unknown]
  - Pruritus [Unknown]
